FAERS Safety Report 5397241-6 (Version None)
Quarter: 2007Q3

REPORT INFORMATION
  Report Type: 
  Country: None (occurrence: None)
  Receive Date: 20070725
  Receipt Date: 20070717
  Transmission Date: 20080115
  Serious: Yes (Death, Hospitalization)
  Sender: FDA-Public Use
  Company Number: FR-ABBOTT-07P-056-0374824-00

PATIENT
  Sex: Male

DRUGS (7)
  1. ZECLAR [Suspect]
     Indication: HELICOBACTER INFECTION
     Route: 048
  2. COLCHICINE [Suspect]
     Indication: DRUG USE FOR UNKNOWN INDICATION
     Route: 048
  3. ALLOPURINOL [Suspect]
     Indication: DRUG USE FOR UNKNOWN INDICATION
     Route: 048
  4. FUROSEMIDE [Suspect]
     Indication: DRUG USE FOR UNKNOWN INDICATION
     Route: 048
  5. METFORMIN HYDROCHLORIDE [Suspect]
     Indication: DRUG USE FOR UNKNOWN INDICATION
     Route: 048
  6. CONVERTING ENZYME INHIBITOR [Concomitant]
     Indication: DRUG USE FOR UNKNOWN INDICATION
  7. TIABENDAZOLE [Concomitant]
     Indication: DRUG USE FOR UNKNOWN INDICATION

REACTIONS (6)
  - BLOOD CREATINE PHOSPHOKINASE INCREASED [None]
  - HEPATITIS [None]
  - PANCYTOPENIA [None]
  - PARALYSIS [None]
  - RENAL FAILURE ACUTE [None]
  - SEPTIC SHOCK [None]
